FAERS Safety Report 8553421-X (Version None)
Quarter: 2012Q3

REPORT INFORMATION
  Report Type: 
  Country: None (occurrence: None)
  Receive Date: 20120731
  Receipt Date: 20120723
  Transmission Date: 20120928
  Serious: Yes (Other)
  Sender: FDA-Public Use
  Company Number: US-BAYER-2012-073783

PATIENT
  Age: 47 Year
  Sex: Female

DRUGS (1)
  1. MIRENA [Suspect]
     Dosage: UNK UNK, CONT
     Dates: start: 20120507

REACTIONS (9)
  - PRURITUS [None]
  - ABDOMINAL PAIN [None]
  - PAIN IN EXTREMITY [None]
  - PELVIC PAIN [None]
  - DYSPAREUNIA [None]
  - NEURALGIA [None]
  - IRRITABILITY [None]
  - ARTHRALGIA [None]
  - BREAST TENDERNESS [None]
